FAERS Safety Report 17183019 (Version 1)
Quarter: 2019Q4

REPORT INFORMATION
  Report Type: Spontaneous
  Country: NL (occurrence: HU)
  Receive Date: 20191220
  Receipt Date: 20191220
  Transmission Date: 20200122
  Serious: Yes (Death, Hospitalization, Other)
  Sender: FDA-Public Use
  Company Number: HU-FRESENIUS KABI-FK201914128

PATIENT

DRUGS (3)
  1. IMIPENEM [Suspect]
     Active Substance: IMIPENEM
     Indication: PRODUCT USED FOR UNKNOWN INDICATION
     Dosage: UNK
     Route: 065
  2. CLINDAMYCIN. [Suspect]
     Active Substance: CLINDAMYCIN
     Indication: PRODUCT USED FOR UNKNOWN INDICATION
     Dosage: UNK
     Route: 065
  3. CLAVULANATE POTASSIUM/AMOXICILLIN TRIHYDRATE [Suspect]
     Active Substance: AMOXICILLIN\CLAVULANATE POTASSIUM
     Indication: PRODUCT USED FOR UNKNOWN INDICATION
     Dosage: UNK
     Route: 065

REACTIONS (18)
  - Joint swelling [Unknown]
  - Wound complication [Unknown]
  - Wound [Unknown]
  - Asthenia [Unknown]
  - Erythema [Unknown]
  - Cellulitis [Unknown]
  - Skin erosion [Unknown]
  - Oedema [Unknown]
  - Granuloma [Unknown]
  - Wound secretion [Unknown]
  - Hypotension [Unknown]
  - Streptococcal infection [Fatal]
  - Oedema peripheral [Unknown]
  - Cardiovascular disorder [Unknown]
  - Necrosis [Unknown]
  - Peripheral swelling [Unknown]
  - Skin discharge [Unknown]
  - Pyrexia [Unknown]
